FAERS Safety Report 5714067-1 (Version None)
Quarter: 2008Q2

REPORT INFORMATION
  Report Type: 
  Country: None (occurrence: None)
  Receive Date: 20080423
  Receipt Date: 20070422
  Transmission Date: 20081010
  Serious: No
  Sender: FDA-Public Use
  Company Number: US-BAYER-US-2007-013735

PATIENT
  Age: 39 Year
  Sex: Female
  Weight: 73 kg

DRUGS (2)
  1. YAZ [Suspect]
     Indication: MENORRHAGIA
     Route: 048
     Dates: start: 20070101
  2. CLARITIN-D [Concomitant]
     Indication: MULTIPLE ALLERGIES
     Dosage: UNIT DOSE: 5 MG
     Route: 048

REACTIONS (1)
  - MENOMETRORRHAGIA [None]
